FAERS Safety Report 4308522-9 (Version None)
Quarter: 2004Q1

REPORT INFORMATION
  Report Type: 
  Country: None (occurrence: None)
  Receive Date: 20040301
  Receipt Date: 20040129
  Transmission Date: 20041129
  Serious: Yes (Hospitalization)
  Sender: FDA-Public Use
  Company Number: US-BRISTOL-MYERS SQUIBB COMPANY-12490272

PATIENT
  Age: 43 Year
  Sex: Female

DRUGS (11)
  1. TAXOL [Suspect]
     Indication: BREAST CANCER METASTATIC
     Route: 042
     Dates: start: 20031217, end: 20031217
  2. ADRIAMYCIN PFS [Suspect]
     Route: 042
     Dates: start: 20040106, end: 20040106
  3. DARVON [Concomitant]
  4. COMPAZINE [Concomitant]
  5. GLUCOPHAGE [Concomitant]
  6. OXYCODONE HCL [Concomitant]
  7. ACTOS [Concomitant]
  8. SYNTHROID [Concomitant]
  9. LANTUS [Concomitant]
  10. HUMALOG [Concomitant]
  11. TRICOR [Concomitant]

REACTIONS (3)
  - CALCINOSIS [None]
  - PLATELET COUNT INCREASED [None]
  - PYELONEPHRITIS [None]
